APPROVED DRUG PRODUCT: INFUVITE PEDIATRIC
Active Ingredient: ASCORBIC ACID; BIOTIN; CHOLECALCIFEROL; CYANOCOBALAMIN; DEXPANTHENOL; FOLIC ACID; NIACINAMIDE; PYRIDOXINE; RIBOFLAVIN; THIAMINE; TOCOPHEROL ACETATE; VITAMIN A; VITAMIN K
Strength: 80MG/VIAL;0.02MG/VIAL;400 IU/VIAL;0.001MG/VIAL;5MG/VIAL;0.14MG/VIAL;17MG/VIAL;1MG/VIAL;1.4MG/VIAL;1.2MG/VIAL;7 IU/VIAL;2,300 IU/VIAL;0.2MG/VIAL
Dosage Form/Route: INJECTABLE;INTRAVENOUS
Application: N021265 | Product #001
Applicant: SANDOZ CANADA INC
Approved: Feb 21, 2001 | RLD: Yes | RS: Yes | Type: RX